FAERS Safety Report 11855463 (Version 1)
Quarter: 2015Q4

REPORT INFORMATION
  Report Type: Spontaneous
  Country: JP (occurrence: JP)
  Receive Date: 20151221
  Receipt Date: 20151221
  Transmission Date: 20160305
  Serious: Yes (Hospitalization)
  Sender: FDA-Public Use
  Company Number: JP-ROCHE-1660315

PATIENT
  Age: 54 Year
  Sex: Male
  Weight: 75 kg

DRUGS (8)
  1. INSULIN [Concomitant]
     Active Substance: INSULIN NOS
     Dosage: DOSAGE IS UNCERTAIN.
     Route: 065
  2. LYRICA [Concomitant]
     Active Substance: PREGABALIN
     Route: 048
     Dates: start: 2012
  3. COPEGUS [Suspect]
     Active Substance: RIBAVIRIN
     Indication: HEPATIC CIRRHOSIS
     Route: 048
     Dates: start: 20150919
  4. NOVORAPID [Concomitant]
     Active Substance: INSULIN ASPART
     Route: 065
     Dates: start: 2012
  5. LANSOPRAZOLE. [Concomitant]
     Active Substance: LANSOPRAZOLE
     Route: 048
     Dates: start: 2012
  6. LANTUS [Concomitant]
     Active Substance: INSULIN GLARGINE
     Route: 065
     Dates: start: 2012
  7. MAGMITT [Concomitant]
     Active Substance: MAGNESIUM OXIDE
     Route: 065
     Dates: start: 2012
  8. SOVALDI [Suspect]
     Active Substance: SOFOSBUVIR
     Indication: HEPATIC CIRRHOSIS
     Route: 048
     Dates: start: 20150919

REACTIONS (2)
  - Cold sweat [Unknown]
  - Chest pain [Recovered/Resolved]

NARRATIVE: CASE EVENT DATE: 20151014
